FAERS Safety Report 24942992 (Version 1)
Quarter: 2025Q1

REPORT INFORMATION
  Report Type: Other
  Country: US (occurrence: US)
  Receive Date: 20250207
  Receipt Date: 20250207
  Transmission Date: 20250409
  Serious: Yes (Hospitalization, Other)
  Sender: RENATA LIMITED
  Company Number: US-Renata Limited-2170686

PATIENT
  Age: 59 Year
  Sex: Female

DRUGS (7)
  1. RISPERIDONE [Suspect]
     Active Substance: RISPERIDONE
     Indication: Hallucination, auditory
  2. RISPERIDONE [Suspect]
     Active Substance: RISPERIDONE
     Indication: Psychotic symptom
  3. QUETIAPINE [Suspect]
     Active Substance: QUETIAPINE
  4. OLANZAPINE [Suspect]
     Active Substance: OLANZAPINE
  5. MIRTAZAPINE [Suspect]
     Active Substance: MIRTAZAPINE
  6. SERTRALINE [Suspect]
     Active Substance: SERTRALINE HYDROCHLORIDE
  7. VALPROIC ACID [Suspect]
     Active Substance: VALPROIC ACID

REACTIONS (4)
  - Delirium [Recovered/Resolved]
  - Parkinsonism [Unknown]
  - Neuroleptic malignant syndrome [Unknown]
  - Pancytopenia [Unknown]
